FAERS Safety Report 4640613-5 (Version None)
Quarter: 2005Q2

REPORT INFORMATION
  Report Type: 
  Country: None (occurrence: None)
  Receive Date: 20050419
  Receipt Date: 20041013
  Transmission Date: 20051028
  Serious: Yes (Hospitalization)
  Sender: FDA-Public Use
  Company Number: 2004SE05340

PATIENT
  Age: 90 Year
  Sex: Female
  Weight: 60 kg

DRUGS (7)
  1. BLOPRESS [Suspect]
     Indication: ESSENTIAL HYPERTENSION
     Dosage: 4 MG QD PO
     Route: 048
     Dates: start: 20001117, end: 20030514
  2. CLINIDIPINE [Concomitant]
  3. AFACALCIDOL [Concomitant]
  4. ASPARTATE CALCIUM [Concomitant]
  5. MECOBALAMIN [Concomitant]
  6. ETIDRONATE DISODIUM [Concomitant]
  7. IPRIFLAVONE [Concomitant]

REACTIONS (3)
  - ATRIAL FIBRILLATION [None]
  - MYOCARDIAL ISCHAEMIA [None]
  - SENILE DEMENTIA [None]
